FAERS Safety Report 5308186-1 (Version None)
Quarter: 2007Q2

REPORT INFORMATION
  Report Type: 
  Country: None (occurrence: None)
  Receive Date: 20070426
  Receipt Date: 20070418
  Transmission Date: 20071010
  Serious: Yes (Hospitalization, Other)
  Sender: FDA-Public Use
  Company Number: US-BAYER-200710678BWH

PATIENT
  Age: 46 Year
  Sex: Male
  Weight: 104 kg

DRUGS (14)
  1. SORAFENIB [Suspect]
     Indication: METASTATIC RENAL CELL CARCINOMA
     Dosage: TOTAL DAILY DOSE: 400 MG  UNIT DOSE: 200 MG
     Route: 048
     Dates: start: 20051010, end: 20051101
  2. SORAFENIB [Suspect]
     Dosage: TOTAL DAILY DOSE: 800 MG  UNIT DOSE: 200 MG
     Route: 048
     Dates: start: 20051101, end: 20070201
  3. SORAFENIB [Suspect]
     Dosage: TOTAL DAILY DOSE: 800 MG  UNIT DOSE: 200 MG
     Route: 048
     Dates: start: 20070201
  4. OXYCODONE HCL [Concomitant]
     Indication: PAIN
     Dosage: TOTAL DAILY DOSE: 240 MG
     Route: 048
  5. OXYCODONE HCL [Concomitant]
     Route: 048
  6. NEURONTIN [Concomitant]
     Indication: PAIN
     Dosage: TOTAL DAILY DOSE: 900 MG
     Route: 048
  7. NEURONTIN [Concomitant]
     Dosage: TOTAL DAILY DOSE: 1200 MG
     Route: 048
  8. DEXAMETHASONE 0.5MG TAB [Concomitant]
     Indication: CANCER PAIN
     Dosage: TOTAL DAILY DOSE: 6 MG
     Route: 048
  9. QUINAPRIL [Concomitant]
     Indication: HYPERTENSION
     Route: 048
     Dates: start: 20060101
  10. PANTOPRAZOLE [Concomitant]
     Dosage: TOTAL DAILY DOSE: 40 MG
     Route: 048
  11. WARFARIN [Concomitant]
     Route: 048
  12. SENNA-S [Concomitant]
     Route: 048
  13. AMLODIPINE [Concomitant]
     Dosage: TOTAL DAILY DOSE: 5 MG
     Route: 048
  14. LISINOPRIL [Concomitant]
     Dosage: TOTAL DAILY DOSE: 40 MG
     Route: 048

REACTIONS (6)
  - DEHYDRATION [None]
  - ENCEPHALITIS HERPES [None]
  - FALL [None]
  - HYDROCEPHALUS [None]
  - MENTAL STATUS CHANGES [None]
  - METASTASES TO MENINGES [None]
